FAERS Safety Report 16480620 (Version 6)
Quarter: 2022Q2

REPORT INFORMATION
  Report Type: Report from Study
  Country: US (occurrence: US)
  Receive Date: 20190626
  Receipt Date: 20220528
  Transmission Date: 20220721
  Serious: Yes (Other)
  Sender: FDA-Public Use
  Company Number: PHEH2019US026727

PATIENT
  Sex: Female

DRUGS (1)
  1. GILENYA [Suspect]
     Active Substance: FINGOLIMOD HYDROCHLORIDE
     Indication: Multiple sclerosis
     Dosage: 0.5 MG, QD
     Route: 048
     Dates: start: 20190617

REACTIONS (11)
  - Multiple sclerosis [Unknown]
  - Nausea [Unknown]
  - Eating disorder [Unknown]
  - Neck pain [Unknown]
  - Intervertebral disc degeneration [Unknown]
  - Insomnia [Unknown]
  - Back pain [Unknown]
  - Headache [Recovered/Resolved]
  - Dizziness [Unknown]
  - Orgasm abnormal [Unknown]
  - Amnesia [Unknown]
